FAERS Safety Report 9636637 (Version 3)
Quarter: 2013Q4

REPORT INFORMATION
  Report Type: Spontaneous
  Country: JP (occurrence: JP)
  Receive Date: 20131021
  Receipt Date: 20131114
  Transmission Date: 20140711
  Serious: No
  Sender: FDA-Public Use
  Company Number: JP-ASTRAZENECA-2013SE74829

PATIENT
  Age: 94 Day
  Sex: Female
  Weight: 6 kg

DRUGS (5)
  1. SYNAGIS [Suspect]
     Indication: RESPIRATORY SYNCYTIAL VIRUS INFECTION
     Route: 030
     Dates: start: 20130912, end: 20130912
  2. SYNAGIS [Suspect]
     Indication: RESPIRATORY SYNCYTIAL VIRUS INFECTION
     Route: 030
     Dates: start: 20131010, end: 20131010
  3. ACTHIB [Suspect]
     Route: 058
     Dates: start: 20130912
  4. TETRABIK [Suspect]
     Route: 058
     Dates: start: 20130912
  5. PREVNAR [Suspect]
     Route: 058
     Dates: start: 20130912

REACTIONS (1)
  - Cyanosis [Recovered/Resolved]
